FAERS Safety Report 11103392 (Version 1)
Quarter: 2015Q2

REPORT INFORMATION
  Report Type: Spontaneous
  Country: FR (occurrence: FR)
  Receive Date: 20150511
  Receipt Date: 20150511
  Transmission Date: 20150821
  Serious: Yes (Congenital Anomaly, Other)
  Sender: FDA-Public Use
  Company Number: FR-TEVA-560672ISR

PATIENT
  Sex: Male

DRUGS (2)
  1. NEO-CODION [Suspect]
     Active Substance: CODEINE\GRINDELIA HIRSUTULA FLOWERING TOP
     Route: 064
     Dates: start: 201403
  2. LEELOO 0.1 MG/0.02 MG [Suspect]
     Active Substance: ETHINYL ESTRADIOL\LEVONORGESTREL
     Route: 064

REACTIONS (2)
  - Pyloric stenosis [Unknown]
  - Foetal exposure during pregnancy [Unknown]

NARRATIVE: CASE EVENT DATE: 2014
